FAERS Safety Report 19394790 (Version 1)
Quarter: 2021Q2

REPORT INFORMATION
  Report Type: Spontaneous
  Country: US (occurrence: US)
  Receive Date: 20210609
  Receipt Date: 20210609
  Transmission Date: 20210717
  Serious: Yes (Other)
  Sender: FDA-Public Use
  Company Number: US-SLATE RUN PHARMACEUTICALS-21US000512

PATIENT

DRUGS (19)
  1. AZITHROMYCIN USP [Suspect]
     Active Substance: AZITHROMYCIN
     Indication: PRODUCT USED FOR UNKNOWN INDICATION
     Dosage: UNK
     Route: 042
  2. USTEKINUMAB [Concomitant]
     Active Substance: USTEKINUMAB
     Indication: CROHN^S DISEASE
     Dosage: UNK
  3. METRONIDAZOLE. [Concomitant]
     Active Substance: METRONIDAZOLE
     Indication: INCISION SITE ERYTHEMA
     Dosage: 500 MILLIGRAM, Q 8 HR
     Route: 042
  4. IMIPENEM [Concomitant]
     Active Substance: IMIPENEM
     Dosage: 500 MILLIGRAM, Q 6 HR
     Route: 042
  5. AMIKACIN. [Concomitant]
     Active Substance: AMIKACIN
     Indication: MYCOBACTERIUM FORTUITUM INFECTION
     Dosage: 1250 MILLIGRAM, QD
     Route: 042
  6. VANCOMYCIN [Concomitant]
     Active Substance: VANCOMYCIN
     Indication: INCISION SITE ERYTHEMA
     Dosage: 1250 MILLIGRAM, Q 8 HR
     Route: 042
  7. TRIMETHOPRIM SULFAMETHOXAZOLE [Suspect]
     Active Substance: SULFAMETHOXAZOLE\TRIMETHOPRIM
     Indication: PRODUCT USED FOR UNKNOWN INDICATION
     Dosage: UNK
  8. TEDIZOLID [Concomitant]
     Active Substance: TEDIZOLID
     Indication: MYCOBACTERIUM FORTUITUM INFECTION
     Dosage: 200 MILLIGRAM, QD
     Route: 048
  9. AMOXICILLIN. [Suspect]
     Active Substance: AMOXICILLIN
     Indication: PRODUCT USED FOR UNKNOWN INDICATION
     Dosage: UNK
  10. VANCOMYCIN [Concomitant]
     Active Substance: VANCOMYCIN
     Dosage: 1500 MILLIGRAM, Q 8 HR
     Route: 042
  11. FLUCONAZOLE. [Concomitant]
     Active Substance: FLUCONAZOLE
     Indication: INCISION SITE ERYTHEMA
     Dosage: 400 MILLIGRAM, QD
     Route: 042
  12. AMIKACIN. [Concomitant]
     Active Substance: AMIKACIN
     Dosage: 1250 MILLIGRAM, QD
     Route: 042
  13. LEVOFLOXACIN. [Concomitant]
     Active Substance: LEVOFLOXACIN
     Indication: MYCOBACTERIUM FORTUITUM INFECTION
     Dosage: 750 MILLIGRAM, QD
     Route: 048
  14. AZITHROMYCIN USP [Suspect]
     Active Substance: AZITHROMYCIN
     Dosage: UNK
  15. DOXYCYCLINE. [Suspect]
     Active Substance: DOXYCYCLINE
     Indication: PRODUCT USED FOR UNKNOWN INDICATION
     Dosage: UNK
  16. PREDNISONE. [Concomitant]
     Active Substance: PREDNISONE
     Indication: CROHN^S DISEASE
     Dosage: UNK
  17. CEFEPIME [Concomitant]
     Active Substance: CEFEPIME HYDROCHLORIDE
     Indication: INCISION SITE ERYTHEMA
     Dosage: 2 GRAM, Q 8 HR
     Route: 042
  18. MEROPENEM. [Concomitant]
     Active Substance: MEROPENEM
     Indication: INCISION SITE ERYTHEMA
     Dosage: 1000 MILLIGRAM, Q 8 HR
     Route: 042
  19. IMIPENEM [Concomitant]
     Active Substance: IMIPENEM
     Indication: MYCOBACTERIUM FORTUITUM INFECTION
     Dosage: 1000 MILLIGRAM, Q 8 HR
     Route: 042

REACTIONS (4)
  - Anaphylactic reaction [Recovered/Resolved]
  - Tinnitus [Unknown]
  - Off label use [Unknown]
  - Pathogen resistance [Not Recovered/Not Resolved]
